FAERS Safety Report 8570442-1 (Version None)
Quarter: 2012Q3

REPORT INFORMATION
  Report Type: 
  Country: None (occurrence: None)
  Receive Date: 20120803
  Receipt Date: 20120725
  Transmission Date: 20120928
  Serious: Yes (Other)
  Sender: FDA-Public Use
  Company Number: US-ASTRAZENECA-2012SE53084

PATIENT
  Age: 60 Year
  Sex: Female

DRUGS (4)
  1. NEXIUM [Suspect]
     Route: 048
  2. CALCIUM CARBONATE [Concomitant]
  3. PLAVIX [Concomitant]
  4. OMEPRAZOLE [Concomitant]

REACTIONS (1)
  - RENAL FAILURE [None]
